FAERS Safety Report 16898487 (Version 1)
Quarter: 2019Q4

REPORT INFORMATION
  Report Type: Spontaneous
  Country: US (occurrence: US)
  Receive Date: 20191009
  Receipt Date: 20191009
  Transmission Date: 20200122
  Serious: Yes (Other)
  Sender: FDA-Public Use
  Company Number: US-KYOWAKIRIN-2019BKK015407

PATIENT

DRUGS (1)
  1. CRYSVITA [Suspect]
     Active Substance: BUROSUMAB-TWZA
     Indication: HEREDITARY HYPOPHOSPHATAEMIC RICKETS
     Dosage: UNKNOWN (BELIVES THAT TAKES 40 MG), EVERY 4 WEEKS
     Route: 065
     Dates: start: 2019

REACTIONS (1)
  - Throat cancer [Unknown]

NARRATIVE: CASE EVENT DATE: 201909
